FAERS Safety Report 10142732 (Version 1)
Quarter: 2014Q2

REPORT INFORMATION
  Report Type: Spontaneous
  Country: DE (occurrence: None)
  Receive Date: 20140425
  Receipt Date: 20140425
  Transmission Date: 20141212
  Serious: Yes (Hospitalization)
  Sender: FDA-Public Use
  Company Number: DE-20140078

PATIENT
  Age: 68 Year
  Sex: Female

DRUGS (1)
  1. GADOTERIC ACID [Suspect]
     Indication: NUCLEAR MAGNETIC RESONANCE IMAGING
     Route: 042
     Dates: start: 20140401, end: 20140401

REACTIONS (4)
  - Anaphylactic reaction [None]
  - Cardiovascular insufficiency [None]
  - Dyspnoea [None]
  - Hot flush [None]
